FAERS Safety Report 8450797-9 (Version None)
Quarter: 2012Q2

REPORT INFORMATION
  Report Type: 
  Country: None (occurrence: None)
  Receive Date: 20120620
  Receipt Date: 20120611
  Transmission Date: 20120825
  Serious: Yes (Other)
  Sender: FDA-Public Use
  Company Number: US-JNJFOC-20120605652

PATIENT
  Age: 31 Year
  Sex: Female

DRUGS (1)
  1. XARELTO [Suspect]
     Indication: ATRIAL FIBRILLATION
     Route: 048
     Dates: start: 20111212, end: 20120210

REACTIONS (4)
  - HEADACHE [None]
  - VISION BLURRED [None]
  - MYALGIA [None]
  - MENORRHAGIA [None]
